FAERS Safety Report 14613014 (Version 4)
Quarter: 2018Q2

REPORT INFORMATION
  Report Type: Report from Study
  Country: US (occurrence: US)
  Receive Date: 20180308
  Receipt Date: 20180627
  Transmission Date: 20180711
  Serious: Yes (Other)
  Sender: FDA-Public Use
  Company Number: PHEH2018US009240

PATIENT
  Age: 68 Year
  Sex: Female
  Weight: 93.44 kg

DRUGS (2)
  1. COSENTYX [Suspect]
     Active Substance: SECUKINUMAB
     Indication: PSORIATIC ARTHROPATHY
     Dosage: 150 MG, QMO
     Route: 058
     Dates: start: 201706
  2. COSENTYX [Suspect]
     Active Substance: SECUKINUMAB
     Indication: JUVENILE PSORIATIC ARTHRITIS
     Dosage: 300 MG, QMO
     Route: 058

REACTIONS (7)
  - Muscle rigidity [Unknown]
  - Psoriasis [Unknown]
  - Influenza like illness [Unknown]
  - Pain in extremity [Unknown]
  - Drug ineffective [Unknown]
  - Diarrhoea [Unknown]
  - Fungal infection [Unknown]

NARRATIVE: CASE EVENT DATE: 20180303
